FAERS Safety Report 9206714 (Version 1)
Quarter: 2013Q1

REPORT INFORMATION
  Report Type: Spontaneous
  Country: US (occurrence: None)
  Receive Date: 20120718
  Receipt Date: 20120718
  Transmission Date: 20140127
  Serious: Yes (Life-Threatening, Hospitalization, Other)
  Sender: FDA-Public Use
  Company Number: 2011SP056879

PATIENT
  Age: 67 Year
  Sex: Male

DRUGS (3)
  1. INTEGRILIN [Suspect]
     Indication: ANGINA UNSTABLE
     Dosage: ; IV
     Route: 042
     Dates: start: 20111118
  2. PLAVIX [Concomitant]
  3. LOVENOX [Concomitant]

REACTIONS (1)
  - Gastrointestinal haemorrhage [None]
